FAERS Safety Report 7918518-3 (Version None)
Quarter: 2011Q4

REPORT INFORMATION
  Report Type: 
  Country: None (occurrence: None)
  Receive Date: 20111116
  Receipt Date: 20111108
  Transmission Date: 20120403
  Serious: Yes (Death, Hospitalization)
  Sender: FDA-Public Use
  Company Number: ZA-BAYER-2011-110181

PATIENT
  Age: 11 Month

DRUGS (3)
  1. ASPIRIN [Suspect]
  2. UNKNOWN [Concomitant]
     Route: 048
  3. UNKNOWN [Concomitant]
     Route: 054

REACTIONS (5)
  - TOXICITY TO VARIOUS AGENTS [None]
  - GASTROENTERITIS [None]
  - METABOLIC ACIDOSIS [None]
  - SEPTIC SHOCK [None]
  - TOXIC ENCEPHALOPATHY [None]
